FAERS Safety Report 6467056-6 (Version None)
Quarter: 2009Q4

REPORT INFORMATION
  Report Type: 
  Country: None (occurrence: None)
  Receive Date: 20091202
  Receipt Date: 20091124
  Transmission Date: 20100525
  Serious: Yes (Hospitalization, Other)
  Sender: FDA-Public Use
  Company Number: BE-EISAI INC.-E2020-05313-SPO-BE

PATIENT
  Age: 89 Year
  Sex: Male

DRUGS (1)
  1. ARICEPT [Suspect]
     Route: 048

REACTIONS (2)
  - DEHYDRATION [None]
  - THIRST DECREASED [None]
